FAERS Safety Report 5508744-5 (Version None)
Quarter: 2007Q4

REPORT INFORMATION
  Report Type: 
  Country: None (occurrence: None)
  Receive Date: 20071105
  Receipt Date: 20071019
  Transmission Date: 20080405
  Serious: Yes (Hospitalization, Other)
  Sender: FDA-Public Use
  Company Number: 2007SP021364

PATIENT
  Age: 54 Year
  Sex: Female

DRUGS (7)
  1. PEG-INTRON [Suspect]
     Indication: HEPATITIS B
     Dosage: SC
     Route: 058
     Dates: start: 20040101
  2. PEG-INTRON [Suspect]
     Indication: HEPATITIS C
     Dosage: SC
     Route: 058
     Dates: start: 20040101
  3. FIORINAL [Concomitant]
  4. PRILOSEC [Concomitant]
  5. CARAFATE [Concomitant]
  6. LEXAPRO [Concomitant]
  7. ADVAIR DISKUS 100/50 [Concomitant]

REACTIONS (9)
  - BREAST CANCER FEMALE [None]
  - DIVORCED [None]
  - HAND FRACTURE [None]
  - HYPOAESTHESIA [None]
  - INSOMNIA [None]
  - MUSCLE SPASMS [None]
  - PNEUMONIA [None]
  - ROAD TRAFFIC ACCIDENT [None]
  - STRESS [None]
